FAERS Safety Report 23636507 (Version 1)
Quarter: 2024Q1

REPORT INFORMATION
  Report Type: Spontaneous
  Country: US (occurrence: US)
  Receive Date: 20240315
  Receipt Date: 20240315
  Transmission Date: 20240409
  Serious: Yes (Death, Hospitalization, Other)
  Sender: FDA-Public Use
  Company Number: US-SUN PHARMACEUTICAL INDUSTRIES LTD-2024R1-436025

PATIENT
  Age: 65 Year
  Sex: Female

DRUGS (1)
  1. METHOTREXATE [Suspect]
     Active Substance: METHOTREXATE
     Indication: Central nervous system lymphoma
     Dosage: UNK
     Route: 065

REACTIONS (13)
  - Toxicity to various agents [Fatal]
  - Confusional state [Unknown]
  - Diarrhoea [Unknown]
  - Pancytopenia [Unknown]
  - Acute kidney injury [Recovering/Resolving]
  - Hyponatraemia [Unknown]
  - Metabolic acidosis [Unknown]
  - Transaminases increased [Unknown]
  - Shock [Unknown]
  - Ulcer haemorrhage [Unknown]
  - Acute respiratory distress syndrome [Fatal]
  - Haemoptysis [Fatal]
  - Rash [Unknown]
